FAERS Safety Report 23545837 (Version 1)
Quarter: 2024Q1

REPORT INFORMATION
  Report Type: Spontaneous
  Country: FR (occurrence: FR)
  Receive Date: 20240220
  Receipt Date: 20240220
  Transmission Date: 20240409
  Serious: Yes (Death, Hospitalization, Other)
  Sender: FDA-Public Use
  Company Number: None

PATIENT
  Age: 77 Year
  Sex: Male
  Weight: 105 kg

DRUGS (51)
  1. CYCLOPHOSPHAMIDE [Suspect]
     Active Substance: CYCLOPHOSPHAMIDE
     Indication: Diffuse large B-cell lymphoma
     Dosage: 1500 MG,  1 DAY 1, EVERY 3 WEEKS
     Route: 042
     Dates: start: 20230816
  2. DOXORUBICIN [Suspect]
     Active Substance: DOXORUBICIN
     Indication: Diffuse large B-cell lymphoma
     Dosage: 100 MG ,CYCLE 1 DAY 1, EVERY 3 WEEKS
     Route: 042
     Dates: start: 20230816
  3. EPCORITAMAB [Suspect]
     Active Substance: EPCORITAMAB
     Dosage: 0.16 MG PRIMING DOSE C1, D1, TOTAL
     Route: 058
     Dates: start: 20230816, end: 20230816
  4. EPCORITAMAB [Suspect]
     Active Substance: EPCORITAMAB
     Indication: Diffuse large B-cell lymphoma
     Dosage: 0.8 MG INTERMEDIATE DOSE C1, D8, TOTAL
     Route: 058
     Dates: start: 20230823, end: 20230823
  5. PREDNISONE [Suspect]
     Active Substance: PREDNISONE
     Indication: Diffuse large B-cell lymphoma
     Dosage: 100 MG,  DAILY C1-6, DAY 1-5, EVERY 1 DAYS
     Route: 048
     Dates: start: 20230816
  6. RITUXIMAB [Suspect]
     Active Substance: RITUXIMAB
     Indication: Diffuse large B-cell lymphoma
     Dosage: 750 MG, CYCLE 1 DAY 1, EVERY 3 WEEKS
     Route: 042
     Dates: start: 20230816
  7. VINCRISTINE [Suspect]
     Active Substance: VINCRISTINE
     Indication: Diffuse large B-cell lymphoma
     Dosage: 2 MG,CYCLE 1 DAY 1, EVERY 3 WEEKS
     Route: 042
     Dates: start: 20230816
  8. MORPHINE SULFATE [Concomitant]
     Active Substance: MORPHINE SULFATE
     Indication: Chest pain
     Dosage: 5 MG, AS NECESSARY
     Route: 065
     Dates: start: 20230823
  9. MORPHINE SULFATE [Concomitant]
     Active Substance: MORPHINE SULFATE
     Indication: Abdominal pain
  10. ALLOPURINOL [Concomitant]
     Active Substance: ALLOPURINOL
     Indication: Hyperuricaemia
     Dosage: 100 MG,3/DAYS
     Route: 065
     Dates: start: 20230809, end: 20230828
  11. AMIKACIN [Concomitant]
     Active Substance: AMIKACIN
     Indication: Febrile bone marrow aplasia
     Route: 065
     Dates: start: 20230824, end: 20230824
  12. AMIODARONE [Concomitant]
     Active Substance: AMIODARONE
     Indication: Arrhythmia
     Dosage: 200 MG
     Route: 065
     Dates: end: 20230810
  13. AMITRIPTYLINE [Concomitant]
     Active Substance: AMITRIPTYLINE
     Indication: Insomnia
     Dosage: QD,5 DROPS
     Route: 065
     Dates: start: 20230809, end: 20230814
  14. APIXABAN [Concomitant]
     Active Substance: APIXABAN
     Dosage: 2.5 G, 2/DAYS
     Route: 065
     Dates: start: 20230906, end: 20230911
  15. APIXABAN [Concomitant]
     Active Substance: APIXABAN
     Indication: Arrhythmia
     Dosage: 5 MG,2/DAYS
     Route: 065
     Dates: end: 20230828
  16. ATORVASTATIN [Concomitant]
     Active Substance: ATORVASTATIN
     Indication: Dyslipidaemia
     Dosage: 10 MG, EVERY 1 DAYS
     Route: 065
     Dates: start: 20230809, end: 20230902
  17. CANDESARTAN [Concomitant]
     Active Substance: CANDESARTAN
     Indication: Hypertension
     Dosage: 16 MG,EVERY 1 DAYS
     Route: 065
     Dates: end: 20230824
  18. CLOXACILLIN [Concomitant]
     Active Substance: CLOXACILLIN
     Indication: Febrile bone marrow aplasia
     Dosage: UNK
     Route: 065
     Dates: start: 20230825, end: 20230828
  19. DAPTOMYCIN [Concomitant]
     Active Substance: DAPTOMYCIN
     Indication: Staphylococcal infection
     Dosage: 1000 MG,  4/DAYS
     Route: 065
     Dates: start: 20230901
  20. DAPTOMYCIN [Concomitant]
     Active Substance: DAPTOMYCIN
     Dosage: 1000 MG,  EVERY 1 DAYS
     Route: 065
     Dates: start: 20230824, end: 20230824
  21. DEXAMETHASONE [Concomitant]
     Active Substance: DEXAMETHASONE
     Indication: Wheezing
     Dosage: 40 MG
     Route: 065
     Dates: start: 20230824, end: 20230824
  22. DEXAMETHASONE [Concomitant]
     Active Substance: DEXAMETHASONE
     Indication: Chills
  23. POTASSIUM CHLORIDE [Concomitant]
     Active Substance: POTASSIUM CHLORIDE
     Dosage: 600 MG
     Route: 065
     Dates: start: 20230906
  24. POTASSIUM CHLORIDE [Concomitant]
     Active Substance: POTASSIUM CHLORIDE
     Indication: Hypokalaemia
     Dosage: 600 MG, INTERMITTENT, 6/DAYS
     Route: 065
     Dates: start: 20230828, end: 20230829
  25. FILGRASTIM [Concomitant]
     Active Substance: FILGRASTIM
     Indication: Aplasia
     Route: 065
     Dates: start: 20230821
  26. FUROSEMIDE [Concomitant]
     Active Substance: FUROSEMIDE
     Dosage: 125 MG, EVERY 1 DAYS
     Route: 065
     Dates: start: 20230908
  27. FUROSEMIDE [Concomitant]
     Active Substance: FUROSEMIDE
     Indication: Acute kidney injury
     Dosage: 20 MG, EVERY 1 DAYS
     Route: 065
     Dates: start: 20230828, end: 20230829
  28. FUROSEMIDE [Concomitant]
     Active Substance: FUROSEMIDE
     Dosage: 40 MG, EVERY 1 DAYS
     Route: 065
     Dates: start: 20230905, end: 20230906
  29. GABAPENTIN [Concomitant]
     Active Substance: GABAPENTIN
     Indication: Product used for unknown indication
     Dosage: 100 MG
     Route: 065
     Dates: start: 20230823
  30. HYDROCHLOROTHIAZIDE [Concomitant]
     Active Substance: HYDROCHLOROTHIAZIDE
     Indication: Hypertension
     Dosage: 12.5 MG, QD, EVERY 1 DAYS
     Route: 065
     Dates: end: 20230924
  31. IRON [Concomitant]
     Active Substance: IRON
     Indication: Anaemia prophylaxis
     Dosage: 66 MG,  2/DAYS
     Route: 065
     Dates: start: 20230809, end: 20230829
  32. KARDEGIC [Concomitant]
     Active Substance: ASPIRIN DL-LYSINE
     Indication: Peripheral arterial occlusive disease
     Dosage: 75 MG
     Route: 065
     Dates: end: 20230810
  33. LIDOCAINE [Concomitant]
     Active Substance: LIDOCAINE
     Indication: Back pain
     Dosage: 5 % INTERMITTENT, EVERY 1 DAYS ROUTE OF ADMIN (FREE TEXT): UNKNOWN ROUTE
     Route: 065
     Dates: start: 20230810, end: 20230906
  34. POLYETHYLENE GLYCOLS [Concomitant]
     Active Substance: POLYETHYLENE GLYCOLS
     Indication: Constipation prophylaxis
     Dosage: 10 G,3/DAYS
     Route: 065
     Dates: start: 20230814, end: 20230907
  35. METHYLPREDNISOLONE [Concomitant]
     Active Substance: METHYLPREDNISOLONE
     Indication: Product used for unknown indication
     Dosage: 100 MG
     Route: 065
     Dates: end: 20230813
  36. NEBIVOLOL [Concomitant]
     Active Substance: NEBIVOLOL
     Indication: Hypertension
     Dosage: 2.5 MG, QD
     Route: 065
     Dates: end: 20230828
  37. NEFOPAM [Concomitant]
     Active Substance: NEFOPAM
     Indication: Chest pain
     Dosage: 20 MG, AS NECESSARY20 MG OCCASIONAL, AS NECESSARY ROUTE OF ADMIN (FREE TEXT): UNKNOWN ROUTE
     Route: 065
     Dates: start: 20230812
  38. NEFOPAM [Concomitant]
     Active Substance: NEFOPAM
     Indication: Abdominal pain
  39. PANTOPRAZOLE [Concomitant]
     Active Substance: PANTOPRAZOLE
     Indication: Prophylaxis against gastrointestinal ulcer
     Dosage: 20 MG, QD,EVERY 1 DAYS
     Route: 065
     Dates: start: 20230809
  40. PHOSPHORUS [Concomitant]
     Active Substance: PHOSPHORUS
     Indication: Prophylaxis
     Dosage: 30 DROPS, 3/DAYS ROUTE OF ADMIN (FREE TEXT): UNKNOWN ROUTE
     Route: 065
     Dates: start: 20230818, end: 20230830
  41. PIPERACILLIN SODIUM [Concomitant]
     Active Substance: PIPERACILLIN SODIUM
     Indication: Febrile bone marrow aplasia
     Route: 065
     Dates: start: 20230824, end: 20230825
  42. RILMENIDINE [Concomitant]
     Active Substance: RILMENIDINE
     Indication: Hypertension
     Dosage: 1 MG, QD
     Route: 065
     Dates: end: 20230828
  43. SKENAN [Concomitant]
     Active Substance: MORPHINE SULFATE
     Indication: Chest pain
     Dosage: 30 MG,60 MG EVERY 1 DAYS
     Route: 065
     Dates: start: 20230823
  44. SKENAN [Concomitant]
     Active Substance: MORPHINE SULFATE
     Indication: Abdominal pain
  45. TAZOBACTAM [Concomitant]
     Active Substance: TAZOBACTAM
     Indication: Febrile bone marrow aplasia
     Route: 065
     Dates: start: 20230824, end: 20230825
  46. TERBUTALINE [Concomitant]
     Active Substance: TERBUTALINE
     Indication: Hypoxia
     Dosage: 5 MG
     Route: 065
     Dates: start: 20230824, end: 20230824
  47. TRAMADOL [Concomitant]
     Active Substance: TRAMADOL\TRAMADOL HYDROCHLORIDE
     Indication: Chest pain
     Dosage: 100 MG, EVERY 1 DAYS
     Route: 065
     Dates: start: 20230814, end: 20230823
  48. TRAMADOL [Concomitant]
     Active Substance: TRAMADOL\TRAMADOL HYDROCHLORIDE
     Indication: Abdominal pain
     Dosage: 150 MG, EVERY 1 DAYS
     Route: 065
     Dates: start: 20230809, end: 20230814
  49. VALACYCLOVIR HYDROCHLORIDE [Concomitant]
     Active Substance: VALACYCLOVIR HYDROCHLORIDE
     Indication: Antiviral prophylaxis
     Dosage: 500 MG, QD, EVERY 1 DAY
     Route: 065
     Dates: start: 20230831, end: 20230902
  50. ZOPICLONE [Concomitant]
     Active Substance: ZOPICLONE
     Indication: Sleep disorder
     Dosage: 3.75 MG, QD
     Route: 065
     Dates: end: 20230829
  51. ZOPICLONE [Concomitant]
     Active Substance: ZOPICLONE
     Dosage: 3.75 MG, QD
     Route: 065
     Dates: end: 20230827

REACTIONS (6)
  - Enterobacter pneumonia [Fatal]
  - Cytokine release syndrome [Not Recovered/Not Resolved]
  - Acute kidney injury [Not Recovered/Not Resolved]
  - Enterobacter pneumonia [Not Recovered/Not Resolved]
  - Staphylococcal infection [Recovered/Resolved]
  - Escherichia infection [Not Recovered/Not Resolved]

NARRATIVE: CASE EVENT DATE: 20230824
